FAERS Safety Report 4459313-X (Version None)
Quarter: 2004Q3

REPORT INFORMATION
  Report Type: 
  Country: None (occurrence: None)
  Receive Date: 20040923
  Receipt Date: 20040923
  Transmission Date: 20050211
  Serious: Yes (Disabling, Other)
  Sender: FDA-Public Use
  Company Number: None

PATIENT
  Age: 47 Year
  Sex: Female
  Weight: 91.6266 kg

DRUGS (1)
  1. ZOLOFT [Suspect]
     Indication: IRRITABLE BOWEL SYNDROME
     Dosage: 100 MG DAILY ORAL
     Route: 048
     Dates: start: 19940601, end: 20040922

REACTIONS (3)
  - DRUG DEPENDENCE [None]
  - DRUG WITHDRAWAL SYNDROME [None]
  - HYPOTHYROIDISM [None]
